FAERS Safety Report 20702429 (Version 1)
Quarter: 2022Q2

REPORT INFORMATION
  Report Type: Spontaneous
  Country: DE (occurrence: DE)
  Receive Date: 20220412
  Receipt Date: 20220412
  Transmission Date: 20220721
  Serious: Yes (Hospitalization, Other)
  Sender: FDA-Public Use
  Company Number: DE-SA-2022SA074281

PATIENT
  Age: 65 Year
  Sex: Female

DRUGS (4)
  1. MYCOPHENOLATE MOFETIL [Suspect]
     Active Substance: MYCOPHENOLATE MOFETIL
     Indication: Immunosuppressant drug therapy
     Dosage: UNK
  2. TACROLIMUS [Suspect]
     Active Substance: TACROLIMUS
     Indication: Immunosuppressant drug therapy
     Dosage: UNK
  3. ALEMTUZUMAB [Suspect]
     Active Substance: ALEMTUZUMAB
     Indication: Renal transplant
     Dosage: 20 MG
  4. CORTICOSTEROID NOS [Suspect]
     Active Substance: CORTICOSTEROID NOS
     Indication: Immunosuppressant drug therapy
     Dosage: UNK

REACTIONS (10)
  - Cerebral nocardiosis [Recovered/Resolved]
  - Cerebral mass effect [Recovered/Resolved]
  - Hemianopia homonymous [Recovered/Resolved]
  - Brain oedema [Recovered/Resolved]
  - Dizziness [Recovered/Resolved]
  - Nocardiosis [Recovered/Resolved]
  - Headache [Recovered/Resolved]
  - Brain abscess [Recovered/Resolved]
  - Off label use [Unknown]
  - Intentional product misuse [Unknown]
